FAERS Safety Report 25923182 (Version 2)
Quarter: 2025Q4

REPORT INFORMATION
  Report Type: Spontaneous
  Country: US (occurrence: US)
  Receive Date: 20251015
  Receipt Date: 20251022
  Transmission Date: 20260118
  Serious: No
  Sender: JOHNSON AND JOHNSON
  Company Number: US-JNJFOC-20251013646

PATIENT
  Sex: Female

DRUGS (1)
  1. TREMFYA [Suspect]
     Active Substance: GUSELKUMAB
     Indication: Product used for unknown indication
     Dosage: 100.00 MG/ML
     Route: 065

REACTIONS (6)
  - Incorrect dose administered [Unknown]
  - Injection site pain [Unknown]
  - Contusion [Unknown]
  - Drug delivery system malfunction [Unknown]
  - Product leakage [Unknown]
  - Haemorrhage [Unknown]
